FAERS Safety Report 10258163 (Version 2)
Quarter: 2014Q3

REPORT INFORMATION
  Report Type: Spontaneous
  Country: US (occurrence: None)
  Receive Date: 20140623
  Receipt Date: 20140807
  Transmission Date: 20150326
  Serious: Yes (Hospitalization)
  Sender: FDA-Public Use
  Company Number: UNT-2014-002356

PATIENT
  Age: 46 Year
  Sex: Female
  Weight: 52.2 kg

DRUGS (3)
  1. REVATIO (SILDENAFIL CITRATE) UNKNOWN [Concomitant]
  2. LETAIRIS [Concomitant]
     Active Substance: AMBRISENTAN
  3. REMODULIN [Suspect]
     Active Substance: TREPROSTINIL
     Indication: COR PULMONALE CHRONIC
     Dosage: 0.073 UG/KG, CONTINUING, SUBCUTANEOUS
     Route: 058
     Dates: start: 20020731

REACTIONS (4)
  - Anaemia [None]
  - Thrombosis [None]
  - Ulcer haemorrhage [None]
  - Haemorrhage [None]

NARRATIVE: CASE EVENT DATE: 20140610
